FAERS Safety Report 23185318 (Version 1)
Quarter: 2023Q4

REPORT INFORMATION
  Report Type: Spontaneous
  Country: ES (occurrence: ES)
  Receive Date: 20231115
  Receipt Date: 20231115
  Transmission Date: 20240110
  Serious: Yes (Other)
  Sender: FDA-Public Use
  Company Number: ES-QUAGEN-2023QUALIT00331

PATIENT
  Age: 5 Year
  Sex: Male

DRUGS (3)
  1. VALPROIC ACID [Suspect]
     Active Substance: VALPROIC ACID
     Indication: Lennox-Gastaut syndrome
     Route: 065
  2. LEVETIRACETAM [Concomitant]
     Active Substance: LEVETIRACETAM
     Indication: Lennox-Gastaut syndrome
     Route: 065
  3. CLOBAZAM [Concomitant]
     Active Substance: CLOBAZAM
     Indication: Lennox-Gastaut syndrome
     Route: 065

REACTIONS (14)
  - Epilepsy [Recovered/Resolved]
  - Cerebral disorder [Unknown]
  - Cognitive disorder [Recovered/Resolved]
  - Behaviour disorder [Recovered/Resolved]
  - Akathisia [Recovered/Resolved]
  - Hyperphagia [Recovered/Resolved]
  - Impulsive behaviour [Recovered/Resolved]
  - Dysarthria [Recovered/Resolved]
  - Restlessness [Recovered/Resolved]
  - Somnolence [Recovered/Resolved]
  - Disturbance in attention [Recovered/Resolved]
  - Irritability [Recovered/Resolved]
  - Ataxia [Recovered/Resolved]
  - Product use in unapproved indication [Unknown]
